FAERS Safety Report 7533064-7 (Version None)
Quarter: 2011Q2

REPORT INFORMATION
  Report Type: 
  Country: None (occurrence: None)
  Receive Date: 20110608
  Receipt Date: 20110526
  Transmission Date: 20111010
  Serious: Yes (Other)
  Sender: FDA-Public Use
  Company Number: US-ELI_LILLY_AND_COMPANY-US201103004975

PATIENT
  Sex: Female

DRUGS (13)
  1. CYMBALTA [Concomitant]
  2. VITAMIN D [Concomitant]
  3. RIBOXIN [Concomitant]
  4. FORTEO [Suspect]
     Dosage: 20 UG, QD
     Route: 065
     Dates: end: 20110327
  5. OXYCONTIN [Concomitant]
  6. AMBIEN [Concomitant]
  7. XANAX [Concomitant]
  8. FORTEO [Suspect]
     Indication: OSTEOPOROSIS
     Dosage: 20 UG, DAILY (1/D)
     Route: 065
     Dates: start: 20110227
  9. MULTI-VITAMIN [Concomitant]
  10. CALCIUM CARBONATE [Concomitant]
  11. LYRICA [Concomitant]
  12. VITAMIN B-12 [Concomitant]
  13. ZINC [Concomitant]

REACTIONS (3)
  - BREAST MASS [None]
  - BREAST CANCER [None]
  - POST PROCEDURAL INFECTION [None]
